FAERS Safety Report 8130012-6 (Version None)
Quarter: 2011Q4

REPORT INFORMATION
  Report Type: 
  Country: None (occurrence: None)
  Receive Date: 20111227
  Receipt Date: 20111201
  Transmission Date: 20120403
  Serious: No
  Sender: FDA-Public Use
  Company Number: PHEH2011US02595

PATIENT
  Age: 40 Year
  Sex: Female

DRUGS (1)
  1. GILENYA [Suspect]
     Indication: MULTIPLE SCLEROSIS
     Dosage: 0.5MG, QD, ORAL
     Route: 048
     Dates: start: 20110812

REACTIONS (5)
  - PAIN [None]
  - GENERAL PHYSICAL CONDITION ABNORMAL [None]
  - MUSCULAR WEAKNESS [None]
  - DYSPNOEA [None]
  - LUNG DISORDER [None]
